FAERS Safety Report 6725589-9 (Version None)
Quarter: 2010Q2

REPORT INFORMATION
  Report Type: 
  Country: None (occurrence: None)
  Receive Date: 20100514
  Receipt Date: 20100505
  Transmission Date: 20101027
  Serious: Yes (Other)
  Sender: FDA-Public Use
  Company Number: US-JNJFOC-20100502257

PATIENT
  Age: 8 Month
  Sex: Male

DRUGS (4)
  1. MOTRIN [Suspect]
     Route: 048
  2. MOTRIN [Suspect]
     Indication: MALAISE
     Route: 048
  3. TYLENOL (CAPLET) [Suspect]
     Route: 048
  4. TYLENOL (CAPLET) [Suspect]
     Indication: MALAISE
     Route: 048

REACTIONS (2)
  - CARDIOMEGALY [None]
  - PRODUCT QUALITY ISSUE [None]
